FAERS Safety Report 24158192 (Version 1)
Quarter: 2024Q3

REPORT INFORMATION
  Report Type: Spontaneous
  Country: CN (occurrence: CN)
  Receive Date: 20240731
  Receipt Date: 20240731
  Transmission Date: 20241016
  Serious: Yes (Other)
  Sender: ELI LILLY AND CO
  Company Number: CN-Merck Healthcare KGaA-2024039661

PATIENT
  Age: 87 Year
  Sex: Female
  Weight: 75 kg

DRUGS (4)
  1. ERBITUX [Suspect]
     Active Substance: CETUXIMAB
     Indication: Colon cancer
     Dosage: 9 MG, UNKNOWN
     Route: 041
     Dates: start: 20240709
  2. ERBITUX [Suspect]
     Active Substance: CETUXIMAB
     Dosage: 58.5 MG, UNKNOWN
     Route: 041
     Dates: start: 20240709
  3. ERBITUX [Suspect]
     Active Substance: CETUXIMAB
     Dosage: 382.5 MG, UNKNOWN
     Route: 041
     Dates: start: 20240709
  4. SODIUM CHLORIDE [Concomitant]
     Active Substance: SODIUM CHLORIDE
     Indication: Medication dilution
     Dosage: 250 ML, UNK
     Route: 041
     Dates: start: 20240709, end: 20240709

REACTIONS (2)
  - Blood pressure fluctuation [Recovering/Resolving]
  - Cough [Recovering/Resolving]

NARRATIVE: CASE EVENT DATE: 20240709
